FAERS Safety Report 23958954 (Version 1)
Quarter: 2024Q2

REPORT INFORMATION
  Report Type: Report from Study
  Country: US (occurrence: US)
  Receive Date: 20240611
  Receipt Date: 20240611
  Transmission Date: 20240716
  Serious: Yes (Hospitalization)
  Sender: FDA-Public Use
  Company Number: US-SA-2019SA338017

PATIENT
  Age: 2 Year
  Sex: Female
  Weight: 14.1 kg

DRUGS (8)
  1. DUPILUMAB [Suspect]
     Active Substance: DUPILUMAB
     Indication: Dermatitis atopic
  2. TRIAMCINOLONE [Concomitant]
     Active Substance: TRIAMCINOLONE
     Indication: Dermatitis atopic
     Dosage: 0.1 %, BID
     Route: 061
     Dates: start: 20190506
  3. VANICREAM [Concomitant]
     Active Substance: TITANIUM DIOXIDE\ZINC OXIDE
     Indication: Dermatitis atopic
     Dosage: UNK UNK, PRN
     Route: 061
     Dates: start: 20190407
  4. MUPIROCIN [Concomitant]
     Active Substance: MUPIROCIN
     Indication: Dermatitis atopic
     Dosage: 2 %, BID
     Route: 061
     Dates: start: 20190521
  5. HYDROXYZINE [Concomitant]
     Active Substance: HYDROXYZINE HYDROCHLORIDE
     Indication: Dermatitis atopic
     Dosage: 10 MG, AT BEDTIME DAILY
     Route: 048
     Dates: start: 20191007
  6. HYDROCORTISONE [Concomitant]
     Active Substance: HYDROCORTISONE
     Indication: Dermatitis atopic
     Dosage: 2.5 %, BID
     Route: 061
     Dates: start: 20200124
  7. CETIRIZINE HYDROCHLORIDE [Concomitant]
     Active Substance: CETIRIZINE HYDROCHLORIDE
     Indication: Rhinitis allergic
     Dosage: 5 ML, QD
     Route: 048
     Dates: start: 20190408
  8. FLUTICASONE [Concomitant]
     Active Substance: FLUTICASONE
     Indication: Asthma
     Dosage: 2 PUFFS, BID
     Route: 055
     Dates: start: 20190407

REACTIONS (2)
  - Asthma [Recovered/Resolved]
  - Pneumonia viral [Recovered/Resolved]

NARRATIVE: CASE EVENT DATE: 20191202
